FAERS Safety Report 17550588 (Version 1)
Quarter: 2020Q1

REPORT INFORMATION
  Report Type: Spontaneous
  Country: US (occurrence: US)
  Receive Date: 20200317
  Receipt Date: 20200317
  Transmission Date: 20200409
  Serious: Yes (Death, Other)
  Sender: FDA-Public Use
  Company Number: NVSC2020US075574

PATIENT
  Age: 69 Year
  Sex: Male

DRUGS (2)
  1. PREDNISOLONE. [Suspect]
     Active Substance: PREDNISOLONE
     Indication: GLOMERULONEPHRITIS PROLIFERATIVE
     Dosage: UNK
     Route: 065
  2. CYCLOPHOSPHAMIDE. [Suspect]
     Active Substance: CYCLOPHOSPHAMIDE
     Indication: GLOMERULONEPHRITIS PROLIFERATIVE
     Dosage: UNK
     Route: 065

REACTIONS (1)
  - End stage renal disease [Fatal]
